FAERS Safety Report 8296700-6 (Version None)
Quarter: 2012Q2

REPORT INFORMATION
  Report Type: 
  Country: None (occurrence: None)
  Receive Date: 20120418
  Receipt Date: 20120319
  Transmission Date: 20120825
  Serious: Yes (Other)
  Sender: FDA-Public Use
  Company Number: KR-BAXTER-2012BH000824

PATIENT
  Sex: Male
  Weight: 30 kg

DRUGS (7)
  1. ADVATE [Suspect]
     Route: 042
     Dates: start: 20110112
  2. ADVATE [Suspect]
     Route: 042
     Dates: start: 20110331, end: 20110331
  3. ADVATE [Suspect]
     Route: 042
     Dates: start: 20110403, end: 20110411
  4. ADVATE [Suspect]
     Route: 042
     Dates: start: 20110413, end: 20110413
  5. ADVATE [Suspect]
     Route: 042
     Dates: start: 20110418, end: 20110517
  6. ADVATE [Suspect]
     Route: 042
     Dates: start: 20110518
  7. ADVATE [Suspect]
     Route: 042
     Dates: start: 20110322, end: 20110322

REACTIONS (1)
  - FACTOR VIII INHIBITION [None]
